FAERS Safety Report 7913318-2 (Version None)
Quarter: 2011Q4

REPORT INFORMATION
  Report Type: 
  Country: None (occurrence: None)
  Receive Date: 20111114
  Receipt Date: 20111104
  Transmission Date: 20120403
  Serious: Yes (Other)
  Sender: FDA-Public Use
  Company Number: US-ASTRAZENECA-2010SE53264

PATIENT
  Age: 51 Year
  Sex: Male

DRUGS (14)
  1. PAXIL [Concomitant]
  2. TRILEPTAL [Concomitant]
  3. ACCUPRIL [Concomitant]
  4. LIPITOR [Concomitant]
  5. DEPO-TESTOSTERONE [Concomitant]
     Dosage: 200 MG/ML, 1CC IM PER TWO WEEKS
     Route: 030
  6. GLUCOPHAGE XR [Concomitant]
  7. GEODON [Concomitant]
  8. XANAX [Concomitant]
  9. SYNTHROID [Concomitant]
  10. PREDNISONE [Concomitant]
  11. LITHIUM [Concomitant]
  12. NEXIUM [Suspect]
     Route: 048
  13. SANDOSATIN LAR [Concomitant]
     Route: 030
  14. BYETTA [Concomitant]

REACTIONS (16)
  - BLOOD CHOLESTEROL INCREASED [None]
  - DIABETES MELLITUS [None]
  - SLEEP APNOEA SYNDROME [None]
  - EPILEPSY [None]
  - HYPERTENSION [None]
  - ACROMEGALY [None]
  - BIPOLAR DISORDER [None]
  - ADDISON'S DISEASE [None]
  - DRUG DOSE OMISSION [None]
  - DYSPEPSIA [None]
  - HYPOTHYROIDISM [None]
  - HYPOGONADISM [None]
  - BRAIN NEOPLASM [None]
  - ANXIETY [None]
  - DEPRESSION [None]
  - HIATUS HERNIA [None]
